FAERS Safety Report 15103753 (Version 1)
Quarter: 2018Q3

REPORT INFORMATION
  Report Type: Spontaneous
  Country: US (occurrence: US)
  Receive Date: 20180703
  Receipt Date: 20180703
  Transmission Date: 20181010
  Serious: Yes (Other)
  Sender: FDA-Public Use
  Company Number: US-ABBVIE-18K-163-2401417-00

PATIENT
  Age: 36 Year
  Sex: Male

DRUGS (25)
  1. ABILIFY [Suspect]
     Active Substance: ARIPIPRAZOLE
     Dosage: 20 MG, QD
     Route: 048
     Dates: start: 200406
  2. CLOZAPINE. [Suspect]
     Active Substance: CLOZAPINE
     Dosage: 350 MG, QD (25 MG MORNING AND 325 MG AT BEDTIMES)
     Route: 048
  3. CLOZAPINE. [Suspect]
     Active Substance: CLOZAPINE
     Dosage: 400 MG, QD (ONCE EVERY BEDTIME)
     Route: 048
  4. SERTRALINE [Concomitant]
     Active Substance: SERTRALINE HYDROCHLORIDE
     Indication: PRODUCT USED FOR UNKNOWN INDICATION
     Dates: start: 20040414
  5. ABILIFY [Suspect]
     Active Substance: ARIPIPRAZOLE
     Dosage: 10 MG, QD
     Route: 048
     Dates: start: 20030212
  6. ABILIFY [Suspect]
     Active Substance: ARIPIPRAZOLE
     Route: 065
     Dates: start: 20041013
  7. ZOLOFT [Suspect]
     Active Substance: SERTRALINE HYDROCHLORIDE
     Dosage: 100 MG, QD (BEDTIME)
     Route: 065
  8. ZOPIDEM [Concomitant]
     Active Substance: ZOLPIDEM\ZOLPIDEM TARTRATE
     Indication: PRODUCT USED FOR UNKNOWN INDICATION
     Dates: start: 20050901
  9. ABILIFY [Suspect]
     Active Substance: ARIPIPRAZOLE
     Indication: SCHIZOPHRENIA
     Dosage: UNK
     Route: 065
     Dates: start: 200306, end: 201112
  10. ARIPIPRAZOLE. [Suspect]
     Active Substance: ARIPIPRAZOLE
     Indication: PRODUCT USED FOR UNKNOWN INDICATION
     Dosage: 20 MG, QD
     Route: 048
  11. SIMVASTATIN. [Concomitant]
     Active Substance: SIMVASTATIN
     Indication: PRODUCT USED FOR UNKNOWN INDICATION
     Dates: start: 20050901
  12. CYCLOBENZAPRINE. [Concomitant]
     Active Substance: CYCLOBENZAPRINE
     Indication: PRODUCT USED FOR UNKNOWN INDICATION
     Dates: start: 20050901
  13. DEPAKOTE [Suspect]
     Active Substance: DIVALPROEX SODIUM
     Dosage: 80 MG, QD (BEDTIME)
     Route: 065
  14. IBUPROFEN. [Concomitant]
     Active Substance: IBUPROFEN
     Indication: PRODUCT USED FOR UNKNOWN INDICATION
     Dates: start: 20040414
  15. VITAMIN E [Concomitant]
     Active Substance: .ALPHA.-TOCOPHEROL
     Indication: PRODUCT USED FOR UNKNOWN INDICATION
     Dates: start: 20040414
  16. NAPROXEN. [Concomitant]
     Active Substance: NAPROXEN
     Indication: PRODUCT USED FOR UNKNOWN INDICATION
     Dates: start: 20050901
  17. DEPAKOTE [Suspect]
     Active Substance: DIVALPROEX SODIUM
     Indication: PRODUCT USED FOR UNKNOWN INDICATION
     Dosage: 100 MG, QD, UNKNOWN
     Route: 048
     Dates: end: 20030716
  18. CLOZAPINE. [Suspect]
     Active Substance: CLOZAPINE
     Indication: PRODUCT USED FOR UNKNOWN INDICATION
     Dosage: 100 MG, QD
     Route: 048
  19. CLOZAPINE. [Suspect]
     Active Substance: CLOZAPINE
     Dosage: 300 MG, QD (100 MG THREE TABLETS AT BEDTIME)
     Route: 048
  20. RANITIDINE. [Concomitant]
     Active Substance: RANITIDINE
     Indication: PRODUCT USED FOR UNKNOWN INDICATION
     Dates: start: 20040414
  21. ATENOLOL. [Concomitant]
     Active Substance: ATENOLOL
     Indication: PRODUCT USED FOR UNKNOWN INDICATION
     Dates: start: 20050901
  22. VENLAFAXINE [Concomitant]
     Active Substance: VENLAFAXINE HYDROCHLORIDE
     Indication: PRODUCT USED FOR UNKNOWN INDICATION
     Dates: start: 20050901
  23. ZOLOFT [Suspect]
     Active Substance: SERTRALINE HYDROCHLORIDE
     Indication: PRODUCT USED FOR UNKNOWN INDICATION
     Dosage: 100 MG, QD
     Route: 065
  24. GEODON [Suspect]
     Active Substance: ZIPRASIDONE HYDROCHLORIDE\ZIPRASIDONE MESYLATE
     Indication: INSOMNIA
     Route: 065
  25. LORATADINE. [Concomitant]
     Active Substance: LORATADINE
     Indication: PRODUCT USED FOR UNKNOWN INDICATION
     Dates: start: 20040414

REACTIONS (65)
  - Intentional self-injury [Unknown]
  - Dizziness postural [Unknown]
  - Nausea [Unknown]
  - Tearfulness [Unknown]
  - Hyperventilation [Unknown]
  - Compulsive sexual behaviour [Unknown]
  - Delusion [Unknown]
  - Feeling abnormal [Unknown]
  - Sedation [Unknown]
  - Agitation [Unknown]
  - Bradykinesia [Unknown]
  - Somnolence [Unknown]
  - Depression [Unknown]
  - Intrusive thoughts [Unknown]
  - Dyskinesia [Unknown]
  - Eating disorder [Unknown]
  - Sleep disorder [Unknown]
  - Compulsive shopping [Recovered/Resolved]
  - Abdominal discomfort [Unknown]
  - Dyspepsia [Unknown]
  - Restlessness [Unknown]
  - Suicidal ideation [Recovered/Resolved]
  - Sensory loss [Unknown]
  - Mood swings [Unknown]
  - Disturbance in sexual arousal [Recovered/Resolved]
  - Flatulence [Unknown]
  - Sluggishness [Unknown]
  - Drooling [Unknown]
  - Tachycardia [Unknown]
  - Tardive dyskinesia [Unknown]
  - Feeling abnormal [Unknown]
  - Anxiety [Unknown]
  - Dizziness postural [Unknown]
  - Weight decreased [Unknown]
  - Suicide attempt [Recovered/Resolved]
  - Off label use [Unknown]
  - Energy increased [Unknown]
  - Depressed mood [Unknown]
  - Blood pressure abnormal [Unknown]
  - Salivary hypersecretion [Unknown]
  - Irritability [Unknown]
  - Hospitalisation [Unknown]
  - Cognitive disorder [Unknown]
  - Ejaculation delayed [Unknown]
  - Mental disorder [Unknown]
  - Hypoaesthesia [Unknown]
  - Muscle spasms [Unknown]
  - Depressed mood [Unknown]
  - Anger [Unknown]
  - Aggression [Unknown]
  - Weight increased [Not Recovered/Not Resolved]
  - Constipation [Unknown]
  - Emotional disorder [Unknown]
  - Ear infection [Unknown]
  - Blunted affect [Unknown]
  - Anger [Unknown]
  - Memory impairment [Unknown]
  - Libido increased [Unknown]
  - Hypersexuality [Unknown]
  - Tremor [Unknown]
  - Libido decreased [Unknown]
  - Orthostatic hypotension [Unknown]
  - Tremor [Unknown]
  - Psychiatric symptom [Unknown]
  - Fatigue [Unknown]

NARRATIVE: CASE EVENT DATE: 2003
